FAERS Safety Report 10819917 (Version 1)
Quarter: 2015Q1

REPORT INFORMATION
  Report Type: Report from Study
  Country: US (occurrence: US)
  Receive Date: 20150218
  Receipt Date: 20150218
  Transmission Date: 20150721
  Serious: No
  Sender: FDA-Public Use
  Company Number: US-ABBVIE-14K-163-1295325-00

PATIENT
  Sex: Female

DRUGS (4)
  1. UNKNOWN STERIODS [Concomitant]
     Indication: CROHN^S DISEASE
  2. HUMIRA [Suspect]
     Active Substance: ADALIMUMAB
     Indication: CROHN^S DISEASE
     Route: 065
     Dates: start: 2011
  3. UNKNOWN STERIODS [Concomitant]
     Indication: CROHN^S DISEASE
  4. UNKNOWN STERIODS [Concomitant]
     Indication: CROHN^S DISEASE

REACTIONS (5)
  - Abdominal pain upper [Unknown]
  - Stress [Unknown]
  - Drug effect incomplete [Recovering/Resolving]
  - Osteoarthritis [Not Recovered/Not Resolved]
  - Spinal osteoarthritis [Not Recovered/Not Resolved]

NARRATIVE: CASE EVENT DATE: 2011
